FAERS Safety Report 22000810 (Version 1)
Quarter: 2023Q1

REPORT INFORMATION
  Report Type: Spontaneous
  Country: US (occurrence: US)
  Receive Date: 20230216
  Receipt Date: 20230216
  Transmission Date: 20230418
  Serious: No
  Sender: FDA-Public Use
  Company Number: US-MYLANLABS-2023M1014963

PATIENT

DRUGS (2)
  1. GABAPENTIN [Suspect]
     Active Substance: GABAPENTIN
     Indication: Product used for unknown indication
     Dosage: 900 MILLIGRAM, QD
     Route: 048
  2. GABAPENTIN [Suspect]
     Active Substance: GABAPENTIN
     Dosage: 300 MILLIGRAM, QD (DAILY)
     Route: 048

REACTIONS (3)
  - Anxiety [Unknown]
  - Insomnia [Unknown]
  - Withdrawal syndrome [Unknown]
